FAERS Safety Report 5007693-9 (Version None)
Quarter: 2006Q2

REPORT INFORMATION
  Report Type: 
  Country: None (occurrence: None)
  Receive Date: 20060522
  Receipt Date: 20060511
  Transmission Date: 20061013
  Serious: Yes (Hospitalization, Other)
  Sender: FDA-Public Use
  Company Number: US-JNJFOC-20050504980

PATIENT
  Sex: Female

DRUGS (8)
  1. TYLENOL (GELTAB) [Suspect]
  2. TYLENOL (GELTAB) [Suspect]
     Indication: PAIN
  3. DURAGESIC-100 [Suspect]
     Indication: PAIN
  4. DURAGESIC-100 [Suspect]
  5. DARVOCET-N 100 [Suspect]
  6. ^A BUNCH OF OTHER MEDICATIONS^ [Suspect]
     Indication: DRUG USE FOR UNKNOWN INDICATION
  7. VICODIN [Suspect]
     Route: 048
  8. VICODIN [Suspect]
     Dosage: 1-2 TABLETS EVERY 4-6 HRS PRN
     Route: 048

REACTIONS (4)
  - CONFUSIONAL STATE [None]
  - CONJUNCTIVITIS [None]
  - HALLUCINATION, VISUAL [None]
  - LUNG INFILTRATION [None]
